FAERS Safety Report 4322989-1 (Version None)
Quarter: 2004Q1

REPORT INFORMATION
  Report Type: 
  Country: None (occurrence: None)
  Receive Date: 20040322
  Receipt Date: 20040312
  Transmission Date: 20041129
  Serious: Yes (Other)
  Sender: FDA-Public Use
  Company Number: 200322527BWH

PATIENT
  Age: 76 Year
  Sex: Male
  Weight: 76.2043 kg

DRUGS (5)
  1. AVELOX [Suspect]
     Indication: BRONCHIAL INFECTION
     Dosage: 400 MG TOTAL DAILY ORAL
     Route: 048
     Dates: start: 20030724
  2. PROCRIT [Concomitant]
  3. IRON [Concomitant]
  4. SUPPLEMENTAL OXYGEN [Concomitant]
  5. NEBULIZERS [Concomitant]

REACTIONS (2)
  - DYSPNOEA [None]
  - FATIGUE [None]
